FAERS Safety Report 5731699-5 (Version None)
Quarter: 2008Q2

REPORT INFORMATION
  Report Type: 
  Country: None (occurrence: None)
  Receive Date: 20080508
  Receipt Date: 20080430
  Transmission Date: 20081010
  Serious: Yes (Death)
  Sender: FDA-Public Use
  Company Number: AU-ELI_LILLY_AND_COMPANY-AU200805000004

PATIENT
  Sex: Male

DRUGS (1)
  1. CIALIS [Suspect]
     Indication: ERECTILE DYSFUNCTION
     Dosage: 1 D/F, MONTHLY (1/M)
     Route: 048
     Dates: start: 20040101

REACTIONS (2)
  - PROSTATE CANCER STAGE IV [None]
  - PROSTATIC SPECIFIC ANTIGEN INCREASED [None]
